FAERS Safety Report 6812202-5 (Version None)
Quarter: 2010Q3

REPORT INFORMATION
  Report Type: 
  Country: None (occurrence: None)
  Receive Date: 20100701
  Receipt Date: 20100621
  Transmission Date: 20110219
  Serious: Yes (Life-Threatening)
  Sender: FDA-Public Use
  Company Number: IT-JNJFOC-20100600716

PATIENT
  Age: 62 Year
  Sex: Male

DRUGS (3)
  1. REMICADE [Suspect]
     Indication: ANKYLOSING SPONDYLITIS
     Route: 042
  2. CHLORPHENAMINE [Concomitant]
     Indication: PREMEDICATION
  3. SOLU-MEDROL [Concomitant]
     Indication: PREMEDICATION

REACTIONS (1)
  - ASTHMA [None]
